FAERS Safety Report 7543321-6 (Version None)
Quarter: 2011Q2

REPORT INFORMATION
  Report Type: 
  Country: None (occurrence: None)
  Receive Date: 20110613
  Receipt Date: 20110609
  Transmission Date: 20111010
  Serious: Yes (Other)
  Sender: FDA-Public Use
  Company Number: ES-AMGEN-ESPSP2011027756

PATIENT
  Age: 67 Year
  Sex: Female
  Weight: 104 kg

DRUGS (3)
  1. ATACAND [Concomitant]
  2. IMMUNOGLOBULINS [Concomitant]
  3. NPLATE [Suspect]
     Indication: IDIOPATHIC THROMBOCYTOPENIC PURPURA
     Dosage: UNK UNK, QWK
     Route: 058
     Dates: start: 20100330, end: 20110517

REACTIONS (1)
  - THERAPEUTIC RESPONSE DECREASED [None]
